FAERS Safety Report 9103166 (Version 2)
Quarter: 2013Q2

REPORT INFORMATION
  Report Type: Spontaneous
  Country: FR (occurrence: FR)
  Receive Date: 20130219
  Receipt Date: 20130603
  Transmission Date: 20140414
  Serious: Yes (Other)
  Sender: FDA-Public Use
  Company Number: FR-TEVA-386060ISR

PATIENT
  Age: 32 Year
  Sex: Female
  Weight: 60 kg

DRUGS (5)
  1. COPAXONE [Suspect]
     Indication: MULTIPLE SCLEROSIS
     Dates: start: 2005, end: 20120308
  2. COPAXONE [Suspect]
     Dates: start: 20130326
  3. LEVOTHYROX [Concomitant]
     Indication: AUTOIMMUNE THYROIDITIS
  4. MOPRAL [Concomitant]
  5. SPAGULAX [Concomitant]

REACTIONS (5)
  - Gestational diabetes [Recovered/Resolved]
  - Hypotension [Recovered/Resolved]
  - Uterine contractions abnormal [Recovered/Resolved]
  - Paraesthesia [Recovered/Resolved]
  - Live birth [Recovered/Resolved]
